FAERS Safety Report 4514647-5 (Version None)
Quarter: 2004Q3

REPORT INFORMATION
  Report Type: 
  Country: None (occurrence: None)
  Receive Date: 20040927
  Receipt Date: 20040707
  Transmission Date: 20050211
  Serious: Yes (Hospitalization)
  Sender: FDA-Public Use
  Company Number: UK082435

PATIENT
  Age: 49 Year
  Sex: Female
  Weight: 52 kg

DRUGS (2)
  1. NEULASTA [Suspect]
     Indication: CHEMOTHERAPY
     Dosage: 6 MG, 1 IN 3 WEEKS, SC
     Route: 058
     Dates: start: 20040207, end: 20040330
  2. DOXORUBICIN HCL [Concomitant]

REACTIONS (1)
  - BACK PAIN [None]
